FAERS Safety Report 16623875 (Version 2)
Quarter: 2019Q3

REPORT INFORMATION
  Report Type: Report from Study
  Country: None (occurrence: HU)
  Receive Date: 20190724
  Receipt Date: 20190919
  Transmission Date: 20191004
  Serious: Yes (Hospitalization)
  Sender: FDA-Public Use
  Company Number: HU-ABBVIE-19K-076-2861418-00

PATIENT
  Age: 68 Year
  Sex: Female

DRUGS (3)
  1. HUMIRA [Suspect]
     Active Substance: ADALIMUMAB
     Indication: RHEUMATOID ARTHRITIS
     Route: 058
     Dates: start: 201808, end: 20190617
  2. MEDROL [Concomitant]
     Active Substance: METHYLPREDNISOLONE
  3. MEDROL [Concomitant]
     Active Substance: METHYLPREDNISOLONE
     Indication: RHEUMATOID ARTHRITIS
     Route: 048
     Dates: start: 20190603, end: 20190621

REACTIONS (8)
  - Pulmonary oedema [Recovered/Resolved]
  - Back pain [Recovered/Resolved]
  - Hypotension [Unknown]
  - Pneumonia [Recovered/Resolved]
  - Vomiting [Unknown]
  - Sepsis [Recovered/Resolved]
  - Pyrexia [Recovered/Resolved]
  - Red blood cell sedimentation rate increased [Unknown]

NARRATIVE: CASE EVENT DATE: 201905
